APPROVED DRUG PRODUCT: BETHANECHOL CHLORIDE
Active Ingredient: BETHANECHOL CHLORIDE
Strength: 50MG
Dosage Form/Route: TABLET;ORAL
Application: A040509 | Product #001
Applicant: ABLE LABORATORIES INC
Approved: Jul 27, 2004 | RLD: No | RS: No | Type: DISCN